FAERS Safety Report 23843126 (Version 1)
Quarter: 2024Q2

REPORT INFORMATION
  Report Type: Spontaneous
  Country: US (occurrence: None)
  Receive Date: 20240510
  Receipt Date: 20240510
  Transmission Date: 20240716
  Serious: Yes (Hospitalization)
  Sender: FDA-Public Use
  Company Number: None

PATIENT
  Sex: Male
  Weight: 86 kg

DRUGS (3)
  1. CYTARABINE [Suspect]
     Active Substance: CYTARABINE
     Dates: end: 20240314
  2. METHOTREXATE [Suspect]
     Active Substance: METHOTREXATE
     Dates: end: 20240311
  3. PONATINIB HYDROCHLORIDE [Suspect]
     Active Substance: PONATINIB HYDROCHLORIDE
     Dates: end: 20240407

REACTIONS (1)
  - Procedural pain [None]

NARRATIVE: CASE EVENT DATE: 20240409
